FAERS Safety Report 23579114 (Version 2)
Quarter: 2024Q3

REPORT INFORMATION
  Report Type: Spontaneous
  Country: US (occurrence: US)
  Receive Date: 20240229
  Receipt Date: 20240925
  Transmission Date: 20241016
  Serious: Yes (Hospitalization, Other)
  Sender: HIKMA
  Company Number: US-HIKMA PHARMACEUTICALS USA INC.-US-H14001-24-01373

PATIENT
  Age: 32 Year
  Sex: Female
  Weight: 50.4 kg

DRUGS (1)
  1. HEPARIN [Suspect]
     Active Substance: HEPARIN SODIUM
     Indication: Thrombosis prophylaxis
     Dosage: 5000 INTERNATIONAL UNIT, Q8H
     Route: 058

REACTIONS (4)
  - Factor Xa activity increased [Unknown]
  - Coagulopathy [Recovered/Resolved]
  - Drug level increased [Recovered/Resolved]
  - Haemoglobin decreased [Unknown]
